FAERS Safety Report 8391773-4 (Version None)
Quarter: 2012Q2

REPORT INFORMATION
  Report Type: 
  Country: None (occurrence: None)
  Receive Date: 20120525
  Receipt Date: 20120525
  Transmission Date: 20120825
  Serious: Yes (Other)
  Sender: FDA-Public Use
  Company Number: None

PATIENT
  Age: 63 Year
  Sex: Female
  Weight: 74.3899 kg

DRUGS (1)
  1. MELOXICAM [Suspect]
     Indication: ARTHRITIS
     Dosage: 7.5 MG DAILY : 2X DAY
     Dates: start: 20111101, end: 20120401

REACTIONS (5)
  - SKIN EXFOLIATION [None]
  - BLISTER [None]
  - ERYTHEMA [None]
  - WOUND SECRETION [None]
  - ORAL MUCOSAL EXFOLIATION [None]
